FAERS Safety Report 9580462 (Version 1)
Quarter: 2013Q4

REPORT INFORMATION
  Report Type: Spontaneous
  Country: US (occurrence: None)
  Receive Date: 20131001
  Receipt Date: 20131001
  Transmission Date: 20140711
  Serious: Yes (Hospitalization)
  Sender: FDA-Public Use
  Company Number: None

PATIENT
  Age: 73 Year
  Sex: Male
  Weight: 74.9 kg

DRUGS (1)
  1. ACETAMINOPHEN/OXYCODONE [Suspect]
     Indication: BONE CANCER
     Dosage: MG PO
     Route: 048
     Dates: start: 20130709, end: 20130920

REACTIONS (2)
  - Drug ineffective [None]
  - Constipation [None]
